FAERS Safety Report 25632051 (Version 1)
Quarter: 2025Q3

REPORT INFORMATION
  Report Type: Spontaneous
  Country: US (occurrence: None)
  Receive Date: 20250731
  Receipt Date: 20250731
  Transmission Date: 20251021
  Serious: Yes (Other)
  Sender: FDA-CTU
  Company Number: None

PATIENT
  Age: 36 Year
  Sex: Male
  Weight: 88.0 kg

DRUGS (2)
  1. ATOMOXETINE [Suspect]
     Active Substance: ATOMOXETINE
     Indication: Attention deficit hyperactivity disorder
     Dosage: 10 MG CAPSULE ONCE DAILY ORAL ?
     Route: 048
     Dates: start: 20200307, end: 20200309
  2. GUANFACINE [Suspect]
     Active Substance: GUANFACINE
     Indication: Attention deficit hyperactivity disorder
     Dates: start: 20200404, end: 20200410

REACTIONS (8)
  - Vertigo [None]
  - Headache [None]
  - Vision blurred [None]
  - Dizziness [None]
  - Nausea [None]
  - Gastrointestinal disorder [None]
  - Vomiting [None]
  - Diarrhoea [None]

NARRATIVE: CASE EVENT DATE: 20200307
